FAERS Safety Report 23689062 (Version 4)
Quarter: 2024Q2

REPORT INFORMATION
  Report Type: Spontaneous
  Country: US (occurrence: US)
  Receive Date: 20240329
  Receipt Date: 20240516
  Transmission Date: 20240716
  Serious: Yes (Hospitalization, Other)
  Sender: FDA-Public Use
  Company Number: US-BRISTOL-MYERS SQUIBB COMPANY-2024-048873

PATIENT
  Age: 85 Year
  Sex: Male

DRUGS (3)
  1. POMALYST [Suspect]
     Active Substance: POMALIDOMIDE
     Indication: Plasma cell myeloma
     Dosage: TAKE 1 CAPSULE BY MOUTH ONCE A DAY ON AN EMPTY STOMACH FOR 21 DAYS, THEN OFF 7 DAYS. REPEAT
     Route: 048
  2. POMALYST [Suspect]
     Active Substance: POMALIDOMIDE
     Route: 048
     Dates: start: 20240326
  3. POMALYST [Suspect]
     Active Substance: POMALIDOMIDE
     Dosage: TAKE 1 CAPSULE BY MOUTH ONCE A DAY ON AN EMPTY STOMACH FOR 21 DAYS, THEN OFF 7 DAYS. REPEAT.
     Route: 048

REACTIONS (6)
  - Blood calcium decreased [Recovered/Resolved]
  - Full blood count decreased [Recovered/Resolved]
  - Fatigue [Recovered/Resolved]
  - Urinary tract infection [Recovered/Resolved]
  - Peripheral swelling [Recovering/Resolving]
  - Inappropriate schedule of product administration [Unknown]
